FAERS Safety Report 25504170 (Version 2)
Quarter: 2025Q3

REPORT INFORMATION
  Report Type: Report from Study
  Country: US (occurrence: US)
  Receive Date: 20250702
  Receipt Date: 20250901
  Transmission Date: 20251021
  Serious: No
  Sender: SUNOVION
  Company Number: US-SUMITOMO PHARMA SWITZERLAND GMBH-2025SPA007211

PATIENT
  Age: 89 Year
  Sex: Male

DRUGS (24)
  1. ORGOVYX [Suspect]
     Active Substance: RELUGOLIX
     Indication: Prostate cancer
     Dosage: 360 MG, SINGLE
     Route: 048
     Dates: start: 20250603, end: 20250603
  2. ORGOVYX [Suspect]
     Active Substance: RELUGOLIX
     Dosage: 120 MG, QD
     Route: 048
     Dates: start: 20250604
  3. ABIRATERONE ACETATE [Concomitant]
     Active Substance: ABIRATERONE ACETATE
  4. AMLODIPINE BESYLATE [Concomitant]
     Active Substance: AMLODIPINE BESYLATE
     Route: 048
  5. CINNAMON [Concomitant]
     Active Substance: CINNAMON
     Route: 048
  6. DICLOFENAC SODIUM [Concomitant]
     Active Substance: DICLOFENAC SODIUM
     Route: 061
  7. CYCLOBENZAPRINE HYDROCHLORIDE [Concomitant]
     Active Substance: CYCLOBENZAPRINE HYDROCHLORIDE
     Route: 048
  8. UNSPECIFIED INGREDIENT [Concomitant]
     Active Substance: UNSPECIFIED INGREDIENT
     Route: 048
  9. FINASTERIDE [Concomitant]
     Active Substance: FINASTERIDE
     Route: 048
  10. Gas-x max strength [Concomitant]
     Route: 048
  11. IBUPROFEN [Concomitant]
     Active Substance: IBUPROFEN
     Route: 048
  12. JANUVIA [Concomitant]
     Active Substance: SITAGLIPTIN PHOSPHATE
     Route: 048
  13. METHOCARBAMOL [Concomitant]
     Active Substance: METHOCARBAMOL
     Route: 048
  14. METOPROLOL SUCCINATE [Concomitant]
     Active Substance: METOPROLOL SUCCINATE
     Route: 048
  15. METOPROLOL TARTRATE [Concomitant]
     Active Substance: METOPROLOL TARTRATE
     Route: 048
  16. CALCIUM CARBONATE\CHOLECALCIFEROL [Concomitant]
     Active Substance: CALCIUM CARBONATE\CHOLECALCIFEROL
     Route: 048
  17. PANTOPRAZOLE SODIUM [Concomitant]
     Active Substance: PANTOPRAZOLE SODIUM
     Route: 048
  18. PREDNISONE [Concomitant]
     Active Substance: PREDNISONE
  19. Prostate support [Concomitant]
     Route: 048
  20. TUMS [Concomitant]
     Active Substance: CALCIUM CARBONATE
     Route: 048
  21. TYLENOL EXTRA STRENGTH [Concomitant]
     Active Substance: ACETAMINOPHEN
     Route: 048
  22. VITAMIN B12 [Concomitant]
     Active Substance: CYANOCOBALAMIN
     Route: 048
  23. MENAQUINONE 6 [Concomitant]
     Active Substance: MENAQUINONE 6
     Route: 048
  24. Oyster shell calcium + d3 [Concomitant]

REACTIONS (3)
  - Heart rate irregular [Unknown]
  - Abdominal pain [Unknown]
  - Diarrhoea [Recovered/Resolved]
